FAERS Safety Report 20809500 (Version 2)
Quarter: 2022Q2

REPORT INFORMATION
  Report Type: Spontaneous
  Country: US (occurrence: US)
  Receive Date: 20220510
  Receipt Date: 20220608
  Transmission Date: 20220721
  Serious: No
  Sender: FDA-Public Use
  Company Number: US-BRISTOL-MYERS SQUIBB COMPANY-2022-016964

PATIENT
  Age: 79 Year
  Sex: Male

DRUGS (2)
  1. REVLIMID [Suspect]
     Active Substance: LENALIDOMIDE
     Indication: Product used for unknown indication
     Route: 048
     Dates: start: 20190807
  2. REVLIMID [Suspect]
     Active Substance: LENALIDOMIDE
     Dosage: DAILY FOR 14 DAYS ?FREQUENCY: DAILY
     Route: 048
     Dates: start: 2019

REACTIONS (4)
  - Constipation [Unknown]
  - Blood potassium decreased [Unknown]
  - Diarrhoea [Unknown]
  - Oedema peripheral [Unknown]

NARRATIVE: CASE EVENT DATE: 20220309
